FAERS Safety Report 23570970 (Version 2)
Quarter: 2025Q1

REPORT INFORMATION
  Report Type: Spontaneous
  Country: US (occurrence: US)
  Receive Date: 20240227
  Receipt Date: 20250318
  Transmission Date: 20250408
  Serious: No
  Sender: PFIZER
  Company Number: US-PFIZER INC-PV202400025826

PATIENT
  Age: 63 Year
  Sex: Female

DRUGS (2)
  1. IBRANCE [Suspect]
     Active Substance: PALBOCICLIB
  2. IBRANCE [Suspect]
     Active Substance: PALBOCICLIB
     Dosage: 75 MG,(QOD= EVERU OTHER DAY) ALTERNATE DAY

REACTIONS (4)
  - COVID-19 [Not Recovered/Not Resolved]
  - Viral infection [Recovered/Resolved]
  - Fatigue [Recovering/Resolving]
  - Off label use [Unknown]
